FAERS Safety Report 4648390-9 (Version None)
Quarter: 2005Q2

REPORT INFORMATION
  Report Type: 
  Country: None (occurrence: None)
  Receive Date: 20050427
  Receipt Date: 20050427
  Transmission Date: 20051028
  Serious: Yes (Life-Threatening, Hospitalization)
  Sender: FDA-Public Use
  Company Number: TCI2005A00138

PATIENT
  Age: 35 Year
  Sex: Female

DRUGS (12)
  1. LEUPROLIDE ACETATE [Suspect]
     Indication: BREAST CANCER
     Dosage: 3.75 MG (3.75 MG, 1 IN 28 D), SUBCUTANEOUS
     Route: 058
     Dates: start: 20041207, end: 20050107
  2. FUROSEMIDE [Concomitant]
  3. ALDACTONE-A (SPIRONOLACTONE) (TABLETS) [Concomitant]
  4. FLUITRAN (TRICHLORMETHIAZIDE) (TABLETS) [Concomitant]
  5. NU-LOTAN (LOSARTAN POTASSIUM) (TABLETS) [Concomitant]
  6. ARTIST (CARVEDIOLOL ) (TABELTS) [Concomitant]
  7. BAYASPIRIN (ACETYLSALICYLIC ACID) (TABLETS) [Concomitant]
  8. WARFARIN (WARFRIN) (TABELTS) [Concomitant]
  9. ASPARA K (ASPARTATE POTASSIUM ) (TABLETS) [Concomitant]
  10. MUCOSTA (REBAMIPIDE) (TABLETS) [Concomitant]
  11. MAGNESIUM OXIDE (PREPARATION FOR ORAL USE (NOS)) [Concomitant]
  12. NOLVADEX (TAMOXIFEN CITRATE) (TABLETS) [Concomitant]

REACTIONS (4)
  - FATIGUE [None]
  - HAEMORRHAGE SUBCUTANEOUS [None]
  - HYPERTHERMIA [None]
  - PANCYTOPENIA [None]
